FAERS Safety Report 5730731-2 (Version None)
Quarter: 2008Q2

REPORT INFORMATION
  Report Type: 
  Country: None (occurrence: None)
  Receive Date: 20080507
  Receipt Date: 20080428
  Transmission Date: 20081010
  Serious: Yes (Hospitalization, Other)
  Sender: FDA-Public Use
  Company Number: US-PFIZER INC-2008014100

PATIENT
  Sex: Male

DRUGS (11)
  1. CHANTIX [Suspect]
     Indication: NICOTINE DEPENDENCE
     Dosage: FREQ:DAILY
     Route: 048
  2. CELEBREX [Suspect]
     Indication: ARTHRITIS
     Route: 048
  3. LIPITOR [Concomitant]
  4. LISINOPRIL [Concomitant]
  5. METFORMIN HCL [Concomitant]
  6. GLUCOPHAGE [Concomitant]
  7. ACTOS [Concomitant]
  8. METOPROLOL TARTRATE [Concomitant]
  9. ACETYLSALICYLIC ACID SRT [Concomitant]
  10. ATIVAN [Concomitant]
  11. GLIPIZIDE [Concomitant]

REACTIONS (7)
  - AGITATION [None]
  - ANXIETY [None]
  - DEPRESSION [None]
  - HOMICIDAL IDEATION [None]
  - IRRITABILITY [None]
  - MOOD SWINGS [None]
  - SUICIDAL IDEATION [None]
